FAERS Safety Report 4786580-5 (Version None)
Quarter: 2005Q3

REPORT INFORMATION
  Report Type: 
  Country: None (occurrence: None)
  Receive Date: 20050927
  Receipt Date: 20050603
  Transmission Date: 20060218
  Serious: No
  Sender: FDA-Public Use
  Company Number: USA050699728

PATIENT
  Sex: Female

DRUGS (1)
  1. STRATTERA [Suspect]
     Dosage: 100 MG

REACTIONS (1)
  - ACCIDENTAL OVERDOSE [None]
